FAERS Safety Report 22060174 (Version 1)
Quarter: 2023Q1

REPORT INFORMATION
  Report Type: Spontaneous
  Country: US (occurrence: None)
  Receive Date: 20230302
  Receipt Date: 20230302
  Transmission Date: 20230418
  Serious: Yes (Hospitalization)
  Sender: FDA-Public Use
  Company Number: None

PATIENT
  Age: 66 Year
  Sex: Female
  Weight: 65.7 kg

DRUGS (14)
  1. WELLBUTRIN [Suspect]
     Active Substance: BUPROPION HYDROCHLORIDE
     Indication: Depression
     Route: 048
     Dates: start: 20211001
  2. BUPROPION [Concomitant]
     Active Substance: BUPROPION
  3. LEVOTHYROXINE SODIUM [Concomitant]
     Active Substance: LEVOTHYROXINE SODIUM
  4. TAMOXIFEN [Concomitant]
     Active Substance: TAMOXIFEN
  5. ATORVASTATIN [Concomitant]
     Active Substance: ATORVASTATIN
  6. ALENDRONATE SODIUM [Concomitant]
     Active Substance: ALENDRONATE SODIUM
  7. MIRTAZAPINE [Concomitant]
     Active Substance: MIRTAZAPINE
  8. TEMAZEPAM [Concomitant]
     Active Substance: TEMAZEPAM
  9. Lantanaprost [Concomitant]
  10. VITAMIN B12 [Concomitant]
     Active Substance: CYANOCOBALAMIN
  11. CALCIUM [Concomitant]
     Active Substance: CALCIUM
  12. VITAMIN D3 [Concomitant]
     Active Substance: CHOLECALCIFEROL
  13. ASPIRIN [Concomitant]
     Active Substance: ASPIRIN
  14. WELLBUTRIN [Suspect]
     Active Substance: BUPROPION HYDROCHLORIDE

REACTIONS (11)
  - Confusional state [None]
  - Aphasia [None]
  - Vomiting [None]
  - Vertigo [None]
  - Nausea [None]
  - Tinnitus [None]
  - Accidental overdose [None]
  - Product physical issue [None]
  - Diplopia [None]
  - Amnesia [None]
  - Seizure [None]

NARRATIVE: CASE EVENT DATE: 20211001
